FAERS Safety Report 18125689 (Version 2)
Quarter: 2020Q3

REPORT INFORMATION
  Report Type: Spontaneous
  Country: US (occurrence: US)
  Receive Date: 20200807
  Receipt Date: 20200827
  Transmission Date: 20201103
  Serious: Yes (Hospitalization, Other)
  Sender: FDA-Public Use
  Company Number: US-PFIZER INC-2020302767

PATIENT
  Age: 69 Year
  Sex: Female
  Weight: 68.04 kg

DRUGS (1)
  1. LYRICA [Suspect]
     Active Substance: PREGABALIN
     Indication: NEURALGIA
     Dosage: 75 MG, 2X/DAY, [75MG CAPUSLE BY MOUTH TWICE A DAY]
     Route: 048

REACTIONS (7)
  - Constipation [Unknown]
  - Nausea [Unknown]
  - Pain [Unknown]
  - Withdrawal syndrome [Recovering/Resolving]
  - COVID-19 [Unknown]
  - Malaise [Unknown]
  - Feeling abnormal [Unknown]
